FAERS Safety Report 9056832 (Version 4)
Quarter: 2013Q2

REPORT INFORMATION
  Report Type: Spontaneous
  Country: US (occurrence: US)
  Receive Date: 20130201
  Receipt Date: 20130509
  Transmission Date: 20140414
  Serious: Yes (Hospitalization)
  Sender: FDA-Public Use
  Company Number: US-GLAXOSMITHKLINE-A0897759A

PATIENT
  Age: 72 Year
  Sex: Male

DRUGS (7)
  1. AVANDIA [Suspect]
     Indication: DIABETES MELLITUS
     Dosage: 8MG PER DAY
     Route: 048
     Dates: start: 20011105, end: 20070602
  2. GLYBURIDE [Concomitant]
  3. XANAX [Concomitant]
  4. FLOMAX [Concomitant]
  5. CAPTOPRIL [Concomitant]
  6. ZOCOR [Concomitant]
  7. CELEBREX [Concomitant]

REACTIONS (5)
  - Myocardial infarction [Not Recovered/Not Resolved]
  - Haemorrhagic stroke [Unknown]
  - Pleural effusion [Unknown]
  - Atrial fibrillation [Unknown]
  - Cardiac failure congestive [Unknown]
